FAERS Safety Report 12765895 (Version 1)
Quarter: 2016Q3

REPORT INFORMATION
  Report Type: Report from Study
  Country: VE (occurrence: VE)
  Receive Date: 20160921
  Receipt Date: 20160921
  Transmission Date: 20161109
  Serious: Yes (Hospitalization, Other)
  Sender: FDA-Public Use
  Company Number: PHHY2016VE128278

PATIENT
  Age: 65 Year
  Sex: Female

DRUGS (5)
  1. VALSARTAN. [Suspect]
     Active Substance: VALSARTAN
     Indication: HYPERTENSION
     Route: 065
  2. BIOTALOL [Suspect]
     Active Substance: BISOPROLOL FUMARATE
     Dosage: 0.5 DF, UNK
     Route: 065
  3. BIOTALOL [Suspect]
     Active Substance: BISOPROLOL FUMARATE
     Indication: HYPERTENSION
     Dosage: UNK
     Route: 065
  4. DIOVAN [Suspect]
     Active Substance: VALSARTAN
     Indication: HYPERTENSION
     Dosage: 40 MG, QD
     Route: 048
     Dates: start: 2007
  5. DIOVAN [Suspect]
     Active Substance: VALSARTAN
     Dosage: 80 MG, UNK
     Route: 065

REACTIONS (4)
  - Seizure [Recovered/Resolved]
  - Breast cancer [Unknown]
  - Underdose [Unknown]
  - Hypotension [Unknown]

NARRATIVE: CASE EVENT DATE: 201510
